FAERS Safety Report 12072155 (Version 1)
Quarter: 2016Q1

REPORT INFORMATION
  Report Type: Spontaneous
  Country: US (occurrence: None)
  Receive Date: 20160211
  Receipt Date: 20160211
  Transmission Date: 20160526
  Serious: Yes (Disabling)
  Sender: FDA-Public Use
  Company Number: None

PATIENT
  Age: 25 Year
  Sex: Female
  Weight: 84.37 kg

DRUGS (4)
  1. ZOLOFT [Suspect]
     Active Substance: SERTRALINE HYDROCHLORIDE
     Indication: ANXIETY
     Dosage: 1 PILL ONCE DAILY TAKEN BY MOUTH
     Route: 048
     Dates: start: 20130208, end: 20160203
  2. SKYLA [Concomitant]
     Active Substance: LEVONORGESTREL
  3. VITAMIN D3 [Concomitant]
     Active Substance: CHOLECALCIFEROL
  4. FLINESTONE MULTIVITAMIN [Concomitant]

REACTIONS (5)
  - Diarrhoea [None]
  - Irritable bowel syndrome [None]
  - Dizziness [None]
  - Eye pain [None]
  - Myalgia [None]

NARRATIVE: CASE EVENT DATE: 20160210
